FAERS Safety Report 7138205-1 (Version None)
Quarter: 2010Q4

REPORT INFORMATION
  Report Type: 
  Country: None (occurrence: None)
  Receive Date: 20101206
  Receipt Date: 20101129
  Transmission Date: 20110411
  Serious: Yes (Hospitalization)
  Sender: FDA-Public Use
  Company Number: FR-ROCHE-719663

PATIENT
  Sex: Female
  Weight: 83 kg

DRUGS (5)
  1. BEVACIZUMAB [Suspect]
     Indication: METASTATIC RENAL CELL CARCINOMA
     Route: 065
     Dates: start: 20100729, end: 20101005
  2. PAZOPANIB [Suspect]
     Indication: METASTATIC RENAL CELL CARCINOMA
     Route: 065
     Dates: start: 20100715, end: 20101005
  3. LEXOMIL [Concomitant]
     Dates: start: 20020101
  4. TERCIAN [Concomitant]
     Dates: start: 20070101
  5. SOPHIDONE [Concomitant]
     Dates: start: 20100601

REACTIONS (3)
  - GENERAL PHYSICAL HEALTH DETERIORATION [None]
  - PAIN [None]
  - SPINAL CORD COMPRESSION [None]
